FAERS Safety Report 9886383 (Version 2)
Quarter: 2014Q1

REPORT INFORMATION
  Report Type: Spontaneous
  Country: US (occurrence: US)
  Receive Date: 20140210
  Receipt Date: 20140303
  Transmission Date: 20141002
  Serious: Yes (Other)
  Sender: FDA-Public Use
  Company Number: US-PFIZER INC-2014035790

PATIENT
  Age: 55 Year
  Sex: Female
  Weight: 68.03 kg

DRUGS (20)
  1. LYRICA [Suspect]
     Indication: DIABETIC NEUROPATHY
     Dosage: 50 MG, 3X/DAY
     Route: 048
     Dates: start: 20131024
  2. LYRICA [Suspect]
     Indication: NEUROPATHY PERIPHERAL
  3. LYRICA [Suspect]
     Indication: FIBROMYALGIA
  4. TOPAMAX [Concomitant]
     Indication: CONVULSION
     Dosage: 100 MG, 1X/DAY
  5. TOPAMAX [Concomitant]
     Dosage: 100 MG, 2X/DAY
     Dates: start: 20110921
  6. LANTUS [Concomitant]
     Indication: DIABETES MELLITUS
     Dosage: 30 IU, DAILY
     Route: 058
     Dates: start: 20100722
  7. LANTUS [Concomitant]
     Dosage: 30 IU, DAILY
     Dates: start: 20130529
  8. NOVOLOG [Concomitant]
     Indication: DIABETES MELLITUS
     Dosage: SLIDING SCALE TID 3X/DAY
     Route: 058
     Dates: start: 20101103
  9. NOVOLOG [Concomitant]
     Dosage: SLIDING SCALE TID 3X/DAY
     Route: 058
     Dates: start: 20130508
  10. EFFEXOR-XR [Concomitant]
     Indication: DEPRESSION
     Dosage: 150 MG, DAILY
     Route: 048
     Dates: start: 20120216
  11. EFFEXOR-XR [Concomitant]
     Dosage: 150 MG, DAILY
     Route: 048
     Dates: start: 20131120
  12. PROVIGIL [Concomitant]
     Indication: NARCOLEPSY
     Dosage: 200 MG, DAILY
     Dates: start: 20100719
  13. PROVIGIL [Concomitant]
     Dosage: 200 MG, DAILY
     Route: 048
     Dates: start: 20130425
  14. LEVOTHYROXINE [Concomitant]
     Indication: HYPOTHYROIDISM
     Dosage: 150 UG, DAILY
     Route: 048
     Dates: start: 20131106
  15. METHOCARBAMOL [Concomitant]
     Dosage: 1500 MG, 3X/DAY
     Route: 048
     Dates: start: 20131120
  16. ASPIRIN LOW DOSE [Concomitant]
     Dosage: UNK
     Route: 048
     Dates: start: 20131106
  17. HYDROCHOROTHIAZIDE [Concomitant]
     Dosage: 25 MG, 1X/DAY
     Route: 048
     Dates: start: 20131021
  18. BENICAR [Concomitant]
     Dosage: 40 MG, 1X/DAY
     Route: 048
     Dates: start: 20130916
  19. SLO-NIACIN [Concomitant]
     Dosage: 500 MG, 1X/DAY
     Route: 048
     Dates: start: 20130529
  20. PROTONIX [Concomitant]
     Dosage: 40 MG, 1X/DAY

REACTIONS (2)
  - Ankle fracture [Unknown]
  - Abasia [Unknown]
